FAERS Safety Report 4740359-9 (Version None)
Quarter: 2005Q3

REPORT INFORMATION
  Report Type: 
  Country: None (occurrence: None)
  Receive Date: 20050805
  Receipt Date: 20050728
  Transmission Date: 20060218
  Serious: Yes (Hospitalization)
  Sender: FDA-Public Use
  Company Number: 2005108866

PATIENT
  Age: 75 Year
  Sex: Male
  Weight: 68 kg

DRUGS (10)
  1. ZOLOFT [Suspect]
     Indication: DEPRESSION
     Dosage: 1 D, ORAL
     Route: 048
     Dates: end: 20050123
  2. TAHOR (ATORVASTAIN) [Suspect]
     Indication: HYPERCHOLESTEROLAEMIA
     Dosage: 1 D
  3. FUROSEMIDE [Suspect]
     Indication: ESSENTIAL HYPERTENSION
     Dosage: 1 D, ORAL
     Route: 048
     Dates: end: 20050123
  4. LERCANIDIPINE [Suspect]
     Indication: ISCHAEMIC CARDIOMYOPATHY
     Dosage: 1 D, ORAL
     Route: 048
     Dates: end: 20050123
  5. GLINBENCLAMIDE (GLINBENCILAMIDE) [Suspect]
     Indication: DIABETES MELLITUS
     Dosage: 10 MG (1 D),ORAL
     Route: 048
     Dates: end: 20050123
  6. TRINIPATCH (GLYCERYL TRINITRATE) [Concomitant]
  7. KARDEGIC (ACETYLSALICYLATE LYSINE) [Concomitant]
  8. COZAAR [Concomitant]
  9. OMEPRAZOLE [Concomitant]
  10. AMIODARONE HYDROCHLORIDE [Concomitant]

REACTIONS (10)
  - BRAIN SCAN ABNORMAL [None]
  - CONDITION AGGRAVATED [None]
  - CONFUSIONAL STATE [None]
  - DEPRESSED LEVEL OF CONSCIOUSNESS [None]
  - DISORIENTATION [None]
  - ELECTROENCEPHALOGRAM ABNORMAL [None]
  - HYPOGLYCAEMIA [None]
  - ISCHAEMIC STROKE [None]
  - NERVOUS SYSTEM DISORDER [None]
  - VASCULAR DEMENTIA [None]
